FAERS Safety Report 23314312 (Version 1)
Quarter: 2023Q4

REPORT INFORMATION
  Report Type: Spontaneous
  Country: IT (occurrence: IT)
  Receive Date: 20231219
  Receipt Date: 20231219
  Transmission Date: 20240110
  Serious: Yes (Other)
  Sender: FDA-Public Use
  Company Number: IT-MYLANLABS-2023M1132803

PATIENT
  Age: 87 Year
  Sex: Female

DRUGS (8)
  1. FONDAPARINUX [Suspect]
     Active Substance: FONDAPARINUX
     Indication: Heparin-induced thrombocytopenia
     Dosage: 2.5 MILLIGRAM, UNK
     Route: 065
     Dates: start: 20230601, end: 20230609
  2. FONDAPARINUX [Suspect]
     Active Substance: FONDAPARINUX
     Indication: Device related thrombosis
     Dosage: 7.5 MILLIGRAM, UNK
     Route: 065
     Dates: start: 20230609
  3. FONDAPARINUX [Suspect]
     Active Substance: FONDAPARINUX
     Indication: Axillary vein thrombosis
  4. ENALAPRIL [Concomitant]
     Active Substance: ENALAPRIL
     Dosage: UNK
     Route: 065
  5. HYDROCHLOROTHIAZIDE [Concomitant]
     Active Substance: HYDROCHLOROTHIAZIDE
     Dosage: UNK
     Route: 065
  6. METOPROLOL [Concomitant]
     Active Substance: METOPROLOL
     Dosage: UNK
     Route: 065
  7. ASPIRIN [Concomitant]
     Active Substance: ASPIRIN
     Dosage: UNK
     Route: 065
  8. EZETIMIBE [Concomitant]
     Active Substance: EZETIMIBE
     Dosage: UNK
     Route: 065

REACTIONS (2)
  - Pulmonary embolism [Recovered/Resolved]
  - Off label use [Unknown]

NARRATIVE: CASE EVENT DATE: 20230612
